FAERS Safety Report 17419281 (Version 1)
Quarter: 2020Q1

REPORT INFORMATION
  Report Type: Spontaneous
  Country: US (occurrence: US)
  Receive Date: 20200214
  Receipt Date: 20200214
  Transmission Date: 20200409
  Serious: No
  Sender: FDA-Public Use
  Company Number: US-UNITED THERAPEUTICS-UNT-2020-002514

PATIENT
  Age: 53 Year
  Sex: Female

DRUGS (1)
  1. TYVASO [Suspect]
     Active Substance: TREPROSTINIL
     Indication: PULMONARY ARTERIAL HYPERTENSION
     Dosage: 96 ?G, QID
     Dates: start: 20181120

REACTIONS (3)
  - Cough [Unknown]
  - Pain in jaw [Unknown]
  - Off label use [Unknown]

NARRATIVE: CASE EVENT DATE: 20181120
